FAERS Safety Report 25373233 (Version 1)
Quarter: 2025Q2

REPORT INFORMATION
  Report Type: Spontaneous
  Country: TW (occurrence: TW)
  Receive Date: 20250529
  Receipt Date: 20250529
  Transmission Date: 20250716
  Serious: Yes (Hospitalization, Other)
  Sender: CSL BEHRING
  Company Number: TW-BEH-2025204643

PATIENT
  Age: 7 Month
  Sex: Male
  Weight: 8 kg

DRUGS (1)
  1. HUMAN IMMUNOGLOBULIN G [Suspect]
     Active Substance: HUMAN IMMUNOGLOBULIN G
     Indication: Kawasaki^s disease
     Route: 042
     Dates: start: 20200720

REACTIONS (13)
  - Haemolytic anaemia [Unknown]
  - Pallor [Unknown]
  - Pallor [Unknown]
  - Pallor [Unknown]
  - Decreased activity [Unknown]
  - Asthenia [Unknown]
  - Peripheral coldness [Unknown]
  - Capillary nail refill test abnormal [Unknown]
  - Livedo reticularis [Unknown]
  - Coombs test positive [Unknown]
  - Chromaturia [Unknown]
  - Hypotension [Unknown]
  - Heart rate abnormal [Unknown]

NARRATIVE: CASE EVENT DATE: 20200722
